FAERS Safety Report 10232717 (Version 2)
Quarter: 2014Q3

REPORT INFORMATION
  Report Type: Spontaneous
  Country: JP (occurrence: None)
  Receive Date: 20140610
  Receipt Date: 20140707
  Transmission Date: 20150326
  Serious: Yes (Hospitalization)
  Sender: FDA-Public Use
  Company Number: 2014-001684

PATIENT
  Age: 85 Year
  Sex: Female

DRUGS (10)
  1. ACTONEL [Suspect]
     Active Substance: RISEDRONATE SODIUM
     Indication: OSTEOPOROSIS
     Route: 048
     Dates: start: 20140425
  2. XYZAL (LEVOCETIRIZINE DIHYDROCHLORIDE) [Concomitant]
  3. CORTRIL (HYDROCORTISONE) [Concomitant]
  4. SPIROPENT (CLENBUTEROL HYDROCHLORIDE) [Concomitant]
  5. VITAMIN D AND ANALOGUES [Concomitant]
  6. PATANOL (OLOPATADINE HYDROCHLORIDE) [Concomitant]
  7. SINGULAIR (MONTELUKAST SODIUM) [Concomitant]
  8. BIOFERMIN (BACILLUS SUBTILIS, LACTOBACILLUS ACIDOPHILUS, STREPTOCOCCUS FAECALIS) [Concomitant]
  9. UNIPHYL (THEOPHYLLINE) [Concomitant]
  10. LANSOPRAZOLE. [Concomitant]
     Active Substance: LANSOPRAZOLE

REACTIONS (2)
  - Intestinal ulcer [None]
  - Abdominal pain [None]

NARRATIVE: CASE EVENT DATE: 20140520
